FAERS Safety Report 6087299 (Version 15)
Quarter: 2013Q4

REPORT INFORMATION
  Report Type: Spontaneous
  Country: US (occurrence: US)
  Receive Date: 20060721
  Receipt Date: 20131001
  Transmission Date: 20140711
  Serious: Yes (Hospitalization, Other)
  Sender: FDA-Public Use
  Company Number: PHEH2006US08864

PATIENT
  Age: 59 Year
  Sex: Male

DRUGS (49)
  1. ZOMETA [Suspect]
     Indication: PLASMA CELL MYELOMA
     Route: 042
     Dates: start: 200304
  2. VINCRISTINE [Concomitant]
     Dates: start: 2003
  3. ADRIAMYCIN [Concomitant]
     Dates: start: 2003
  4. DEXAMETHASONE ^KRKA^ [Concomitant]
     Dates: start: 2003
  5. COUMADIN ^BOOTS^ [Concomitant]
  6. THALIDOMIDE [Concomitant]
  7. NEURONTIN [Concomitant]
  8. VIOXX [Concomitant]
  9. HYDROCODONE [Concomitant]
  10. PROTONIX ^PHARMACIA^ [Concomitant]
  11. GEMFIBROZIL [Concomitant]
  12. AVELOX [Concomitant]
  13. IBUPROFEN [Concomitant]
     Dosage: 800 MG, TID
  14. CHLORTHALIDONE [Concomitant]
     Dosage: 25 MG, QD
  15. PROCRIT                            /00909301/ [Concomitant]
  16. ASPIRIN ^BAYER^ [Concomitant]
  17. MAGNESIUM [Concomitant]
  18. LOPRESSOR [Concomitant]
  19. NITROGLYCERIN ^A.L.^ [Concomitant]
  20. SIMVASTATIN [Concomitant]
  21. METFORMIN [Concomitant]
  22. GLYBURIDE [Concomitant]
  23. HYDROCHLOROTHIAZIDE [Concomitant]
  24. LISINOPRIL [Concomitant]
  25. CYANOCOBALAMIN [Concomitant]
  26. DIVALPROEX SODIUM [Concomitant]
  27. HYDROCODONE W/ACETAMINOPHEN [Concomitant]
  28. LEVOTHYROXINE [Concomitant]
  29. CALCIUM CARBONATE [Concomitant]
  30. MULTIVITAMINS [Concomitant]
  31. PLAVIX [Concomitant]
  32. ZOCOR ^DIECKMANN^ [Concomitant]
  33. DOCUSATE [Concomitant]
  34. INSULIN, REGULAR [Concomitant]
  35. METOCLOPRAMIDE [Concomitant]
  36. OMEPRAZOLE [Concomitant]
  37. DAPSONE [Concomitant]
  38. OXYCODONE [Concomitant]
  39. MORPHINE SULFATE [Concomitant]
  40. REVLIMID [Concomitant]
  41. CLOPIDOGREL BISULFATE [Concomitant]
  42. VALPROIC ACID [Concomitant]
  43. CHEMOTHERAPEUTICS NOS [Concomitant]
  44. PERCOCET [Concomitant]
  45. LORTAB [Concomitant]
  46. VICODIN [Concomitant]
  47. ALBUTEROL [Concomitant]
  48. GUAIFENESIN [Concomitant]
  49. ZESTORETIC [Concomitant]

REACTIONS (88)
  - Catheterisation cardiac [Unknown]
  - Osteonecrosis of jaw [Unknown]
  - Injury [Not Recovered/Not Resolved]
  - Pain [Not Recovered/Not Resolved]
  - Anxiety [Not Recovered/Not Resolved]
  - Dental fistula [Unknown]
  - Osteomyelitis [Unknown]
  - Actinomycosis [Unknown]
  - Tooth impacted [Unknown]
  - Atrial fibrillation [Unknown]
  - Sinusitis [Unknown]
  - Sinus tachycardia [Unknown]
  - Pain in jaw [Unknown]
  - Tooth disorder [Unknown]
  - Dental caries [Unknown]
  - Amnesia [Unknown]
  - Balance disorder [Unknown]
  - Periodontitis [Unknown]
  - Visual acuity reduced [Unknown]
  - Oedema peripheral [Unknown]
  - Flushing [Unknown]
  - Arthralgia [Unknown]
  - Wound [Unknown]
  - Neck pain [Unknown]
  - Microvascular coronary artery disease [Unknown]
  - Amyloidosis [Unknown]
  - Chest discomfort [Unknown]
  - Palpitations [Unknown]
  - Dyspnoea [Unknown]
  - Autonomic nervous system imbalance [Unknown]
  - Orthostatic hypotension [Unknown]
  - Exostosis [Unknown]
  - Osteoarthritis [Unknown]
  - Intervertebral disc space narrowing [Unknown]
  - Spinal cord compression [Unknown]
  - Intervertebral disc degeneration [Unknown]
  - Lumbar spinal stenosis [Unknown]
  - Intervertebral disc protrusion [Unknown]
  - Abscess [Unknown]
  - Peripheral nerve lesion [Unknown]
  - Hyperkeratosis [Unknown]
  - Loss of consciousness [Unknown]
  - Syncope [Unknown]
  - Dyslipidaemia [Unknown]
  - Superior vena cava syndrome [Unknown]
  - Rhabdomyolysis [Unknown]
  - Hypermetropia [Unknown]
  - Presbyopia [Unknown]
  - Anaemia [Unknown]
  - Myocardial infarction [Unknown]
  - Deep vein thrombosis [Unknown]
  - Diverticulum intestinal [Unknown]
  - Contusion [Unknown]
  - Hypothyroidism [Unknown]
  - Vitamin B12 deficiency [Unknown]
  - Polyneuropathy [Unknown]
  - Tendon rupture [Unknown]
  - Convulsion [Unknown]
  - Vena cava thrombosis [Unknown]
  - Bone cancer [Unknown]
  - Haemorrhoids [Unknown]
  - Aspartate aminotransferase increased [Unknown]
  - Joint effusion [Unknown]
  - Joint swelling [Unknown]
  - Vision blurred [Unknown]
  - Eye pruritus [Unknown]
  - Anal fissure [Unknown]
  - Toothache [Unknown]
  - Poor personal hygiene [Unknown]
  - Exposed bone in jaw [Unknown]
  - Impaired healing [Unknown]
  - Scoliosis [Unknown]
  - Spondylolisthesis [Unknown]
  - Impaired gastric emptying [Unknown]
  - Gastritis [Unknown]
  - Arteriosclerosis coronary artery [Unknown]
  - Vascular calcification [Unknown]
  - Spinal osteoarthritis [Unknown]
  - Depression [Unknown]
  - Primary sequestrum [Unknown]
  - Purulent discharge [Unknown]
  - Erythema [Unknown]
  - Periodontal disease [Unknown]
  - Bone loss [Unknown]
  - Hyperlipidaemia [Unknown]
  - Plasmacytosis [Unknown]
  - Chest pain [Unknown]
  - Tooth loss [Unknown]
